FAERS Safety Report 14919051 (Version 8)
Quarter: 2018Q4

REPORT INFORMATION
  Report Type: Report from Study
  Country: US (occurrence: US)
  Receive Date: 20180521
  Receipt Date: 20181101
  Transmission Date: 20190204
  Serious: Yes (Hospitalization, Other)
  Sender: FDA-Public Use
  Company Number: US-PFIZER INC-2018126264

PATIENT
  Age: 56 Year
  Sex: Female

DRUGS (2)
  1. IBRANCE [Suspect]
     Active Substance: PALBOCICLIB
     Indication: BREAST CANCER FEMALE
     Dosage: 125 MG, CYCLIC (DAILY, 28 DAY CYCLE: 3 WEEKS ON, 1 WEEK OFF)
     Route: 048
     Dates: start: 20180318, end: 20180611
  2. IBRANCE [Suspect]
     Active Substance: PALBOCICLIB
     Dosage: 125 MG, CYCLIC (DAILY, 28 DAY CYCLE: 3 WEEKS ON, 1 WEEK OFF)
     Route: 048
     Dates: start: 20180705, end: 20180910

REACTIONS (10)
  - Tumour marker increased [Unknown]
  - Fatigue [Not Recovered/Not Resolved]
  - Ageusia [Unknown]
  - Lymphoedema [Recovering/Resolving]
  - Decreased appetite [Not Recovered/Not Resolved]
  - Constipation [Not Recovered/Not Resolved]
  - Neuropathy peripheral [Not Recovered/Not Resolved]
  - Cerebrovascular accident [Unknown]
  - Bone marrow failure [Not Recovered/Not Resolved]
  - Weight decreased [Unknown]

NARRATIVE: CASE EVENT DATE: 2018
